FAERS Safety Report 10200151 (Version 1)
Quarter: 2014Q2

REPORT INFORMATION
  Report Type: Spontaneous
  Country: IT (occurrence: IT)
  Receive Date: 20140527
  Receipt Date: 20140527
  Transmission Date: 20141212
  Serious: Yes (Other)
  Sender: FDA-Public Use
  Company Number: IT-WATSON-2013-25187

PATIENT
  Age: 17 Year
  Sex: Female

DRUGS (3)
  1. FENOBARBITAL SUSPENSION FOR INJECTION [Suspect]
     Indication: EPILEPSY
     Route: 042
     Dates: start: 20130531, end: 20130603
  2. DIAZEPAM (UNKNOWN) [Suspect]
     Indication: EPILEPSY
     Dosage: 5 MG, QHS
     Route: 042
     Dates: start: 20130531, end: 20130603
  3. ROCEFIN [Concomitant]
     Indication: PRODUCT USED FOR UNKNOWN INDICATION
     Route: 065

REACTIONS (2)
  - Drug ineffective [Not Recovered/Not Resolved]
  - Epilepsy [Not Recovered/Not Resolved]
